FAERS Safety Report 15837046 (Version 1)
Quarter: 2019Q1

REPORT INFORMATION
  Report Type: Spontaneous
  Country: ES (occurrence: ES)
  Receive Date: 20190117
  Receipt Date: 20190117
  Transmission Date: 20190417
  Serious: Yes (Other)
  Sender: FDA-Public Use
  Company Number: ES-BAYER-2019-013351

PATIENT
  Sex: Female

DRUGS (1)
  1. ULTRAVIST [Suspect]
     Active Substance: IOPROMIDE
     Indication: COMPUTERISED TOMOGRAM

REACTIONS (4)
  - Hypotension [Recovering/Resolving]
  - Erythema [Recovering/Resolving]
  - Altered state of consciousness [Recovering/Resolving]
  - Bradyphrenia [Recovering/Resolving]
